FAERS Safety Report 26046473 (Version 1)
Quarter: 2025Q4

REPORT INFORMATION
  Report Type: Spontaneous
  Country: CN (occurrence: CN)
  Receive Date: 20251114
  Receipt Date: 20251114
  Transmission Date: 20260117
  Serious: Yes (Hospitalization, Other)
  Sender: ELI LILLY AND COMPANY
  Company Number: CN-Merck Healthcare KGaA-2025055915

PATIENT
  Age: 32 Year
  Sex: Female

DRUGS (3)
  1. ERBITUX [Suspect]
     Active Substance: CETUXIMAB
     Indication: Tonsil cancer
     Dosage: 400 MG, UNKNOWN
     Route: 041
     Dates: start: 20250424, end: 20250424
  2. PACLITAXEL [Suspect]
     Active Substance: PACLITAXEL
     Indication: Tonsil cancer
     Dosage: 30 MG, DAILY
     Route: 041
     Dates: start: 20250425, end: 20250425
  3. PACLITAXEL [Suspect]
     Active Substance: PACLITAXEL
     Dosage: 185 MG, DAILY
     Route: 041
     Dates: start: 20250425, end: 20250525

REACTIONS (1)
  - Myelosuppression [Recovering/Resolving]

NARRATIVE: CASE EVENT DATE: 20250505
